FAERS Safety Report 4594788-7 (Version None)
Quarter: 2005Q1

REPORT INFORMATION
  Report Type: 
  Country: None (occurrence: None)
  Receive Date: 20050223
  Receipt Date: 20050207
  Transmission Date: 20050727
  Serious: Yes (Other)
  Sender: FDA-Public Use
  Company Number: US014675

PATIENT
  Age: 42 Year
  Sex: Female

DRUGS (1)
  1. GABITRIL [Suspect]
     Dosage: 16 MG BID ORAL

REACTIONS (1)
  - SEROTONIN SYNDROME [None]
